FAERS Safety Report 13804958 (Version 5)
Quarter: 2019Q2

REPORT INFORMATION
  Report Type: Spontaneous
  Country: US (occurrence: US)
  Receive Date: 20170728
  Receipt Date: 20190501
  Transmission Date: 20190711
  Serious: No
  Sender: FDA-Public Use
  Company Number: US-PFIZER INC-2017326574

PATIENT
  Age: 64 Year
  Sex: Female
  Weight: 72 kg

DRUGS (8)
  1. IBRANCE [Suspect]
     Active Substance: PALBOCICLIB
     Indication: BREAST CANCER METASTATIC
     Dosage: 75 MG, CYCLIC [75 MG ONCE PER DAY (21 DAYS)]
     Dates: start: 201503
  2. IBRANCE [Suspect]
     Active Substance: PALBOCICLIB
     Dosage: 75 MG, UNK
     Dates: start: 201503
  3. IBRANCE [Suspect]
     Active Substance: PALBOCICLIB
     Dosage: 100 MG, UNK
     Dates: start: 201708
  4. DENOSUMAB [Concomitant]
     Active Substance: DENOSUMAB
     Indication: BREAST CANCER METASTATIC
     Dosage: 1 MG, MONTHLY (1MG BY INJECTION ONCE A MONTH)
     Dates: start: 201503
  5. IBRANCE [Suspect]
     Active Substance: PALBOCICLIB
     Dosage: 100 MG, CYCLIC (1 CAPSULE 21 DAYS ON AND 7 DAYS OFF)
     Route: 048
     Dates: start: 201503
  6. LETROZOLE. [Concomitant]
     Active Substance: LETROZOLE
     Indication: OSTEOPOROSIS
  7. DENOSUMAB [Concomitant]
     Active Substance: DENOSUMAB
     Indication: OSTEOPOROSIS
  8. LETROZOLE. [Concomitant]
     Active Substance: LETROZOLE
     Indication: BREAST CANCER METASTATIC
     Dosage: 2.5 MG, 1X/DAY
     Route: 048

REACTIONS (14)
  - White blood cell count decreased [Not Recovered/Not Resolved]
  - Red blood cell count decreased [Unknown]
  - Red cell distribution width increased [Unknown]
  - Mean cell haemoglobin concentration decreased [Unknown]
  - Mean platelet volume decreased [Unknown]
  - Lymphocyte count decreased [Unknown]
  - Drug hypersensitivity [Not Recovered/Not Resolved]
  - Tumour marker increased [Unknown]
  - Fatigue [Recovering/Resolving]
  - Pain [Unknown]
  - Myalgia [Not Recovered/Not Resolved]
  - Mean cell volume increased [Unknown]
  - Granulocyte count decreased [Not Recovered/Not Resolved]
  - Mean cell haemoglobin increased [Unknown]

NARRATIVE: CASE EVENT DATE: 201503
